FAERS Safety Report 5152154-X (Version None)
Quarter: 2006Q4

REPORT INFORMATION
  Report Type: 
  Country: None (occurrence: None)
  Receive Date: 20061116
  Receipt Date: 20061006
  Transmission Date: 20070319
  Serious: Yes (Death, Hospitalization)
  Sender: FDA-Public Use
  Company Number: US-GLAXOSMITHKLINE-A0622778A

PATIENT
  Age: 47 Year
  Sex: Female
  Weight: 110.9 kg

DRUGS (11)
  1. WELLBUTRIN [Suspect]
     Indication: MIGRAINE PROPHYLAXIS
     Dosage: 450MG PER DAY
     Route: 048
     Dates: start: 20040101
  2. ALCOHOL [Suspect]
     Route: 048
  3. ZONEGRAN [Concomitant]
  4. ZANAFLEX [Concomitant]
  5. SYNTHROID [Concomitant]
  6. CYMBALTA [Concomitant]
  7. CLARITIN [Concomitant]
  8. IRON [Concomitant]
  9. B-12 [Concomitant]
  10. TUMS [Concomitant]
  11. MULTI-VITAMIN [Concomitant]

REACTIONS (18)
  - ASPARTATE AMINOTRANSFERASE INCREASED [None]
  - BLOOD ALKALINE PHOSPHATASE DECREASED [None]
  - BLOOD CALCIUM DECREASED [None]
  - BLOOD CREATININE DECREASED [None]
  - BLOOD GLUCOSE INCREASED [None]
  - BLOOD LACTATE DEHYDROGENASE INCREASED [None]
  - BLOOD POTASSIUM INCREASED [None]
  - BLOOD URIC ACID DECREASED [None]
  - CARBON DIOXIDE DECREASED [None]
  - CARDIOMEGALY [None]
  - COMPLETED SUICIDE [None]
  - CYANOSIS [None]
  - HEPATIC STEATOSIS [None]
  - HEPATOMEGALY [None]
  - HYPERTROPHIC CARDIOMYOPATHY [None]
  - LOSS OF CONSCIOUSNESS [None]
  - NEPHROSCLEROSIS [None]
  - PHARMACEUTICAL PRODUCT COMPLAINT [None]
